FAERS Safety Report 4927937-9 (Version None)
Quarter: 2006Q1

REPORT INFORMATION
  Report Type: 
  Country: None (occurrence: None)
  Receive Date: 20060223
  Receipt Date: 20060209
  Transmission Date: 20060701
  Serious: Yes (Other)
  Sender: FDA-Public Use
  Company Number: HQWYE756210FEB06

PATIENT

DRUGS (2)
  1. AMIIODARONE (AMIODARONE, INJECTION) [Suspect]
     Indication: SUPRAVENTRICULAR TACHYCARDIA
     Dosage: INTRAVENOUS
     Route: 042
  2. AMIIODARONE (AMIODARONE, INJECTION) [Suspect]
     Indication: VENTRICULAR FIBRILLATION
     Dosage: INTRAVENOUS
     Route: 042

REACTIONS (2)
  - HYPERGLYCAEMIA [None]
  - POST PROCEDURAL COMPLICATION [None]
